FAERS Safety Report 4851798-X (Version None)
Quarter: 2005Q4

REPORT INFORMATION
  Report Type: 
  Country: None (occurrence: None)
  Receive Date: 20051213
  Receipt Date: 20051202
  Transmission Date: 20060501
  Serious: Yes (Hospitalization, Other)
  Sender: FDA-Public Use
  Company Number: GB-JNJFOC-20051201025

PATIENT
  Sex: Female
  Weight: 62 kg

DRUGS (14)
  1. REMICADE [Suspect]
     Indication: RHEUMATOID ARTHRITIS
     Route: 042
  2. METHOTREXATE [Concomitant]
     Route: 065
  3. AMITRIPTYLINE HCL [Concomitant]
     Route: 065
  4. BECOTIDE [Concomitant]
     Route: 065
  5. CALCICHEW [Concomitant]
     Route: 065
  6. CELEBREX [Concomitant]
     Route: 065
  7. CELECOXIB [Concomitant]
     Route: 065
  8. CO-CODAMOL [Concomitant]
     Route: 065
  9. CO-CODAMOL [Concomitant]
     Route: 065
  10. FOLIC ACID [Concomitant]
     Route: 065
  11. GAVISCON [Concomitant]
     Route: 065
  12. GAVISCON [Concomitant]
     Route: 065
  13. LACTULOSE [Concomitant]
     Route: 065
  14. SALBUTAMOL [Concomitant]
     Route: 065

REACTIONS (2)
  - HYDRONEPHROSIS [None]
  - RENAL COLIC [None]
